FAERS Safety Report 23748573 (Version 1)
Quarter: 2024Q2

REPORT INFORMATION
  Report Type: Spontaneous
  Country: CA (occurrence: CA)
  Receive Date: 20240416
  Receipt Date: 20240416
  Transmission Date: 20240716
  Serious: Yes (Life-Threatening, Other)
  Sender: FDA-Public Use
  Company Number: CA-SUN PHARMACEUTICAL INDUSTRIES LTD-2024R1-441398

PATIENT
  Age: 15 Year
  Sex: Female

DRUGS (1)
  1. ACETAMINOPHEN [Suspect]
     Active Substance: ACETAMINOPHEN
     Indication: Product used for unknown indication
     Dosage: 15 G
     Route: 048

REACTIONS (14)
  - Brain death [Unknown]
  - Brain herniation [Unknown]
  - Brain oedema [Unknown]
  - Hepatic encephalopathy [Unknown]
  - Liver injury [Unknown]
  - Overdose [Unknown]
  - Abdominal discomfort [Unknown]
  - Agitation [Unknown]
  - Blood creatinine increased [Unknown]
  - Dose calculation error [Unknown]
  - Headache [Unknown]
  - Nausea [Unknown]
  - Oliguria [Unknown]
  - Seizure [Unknown]
